FAERS Safety Report 18054576 (Version 2)
Quarter: 2020Q3

REPORT INFORMATION
  Report Type: Spontaneous
  Country: IN (occurrence: IN)
  Receive Date: 20200722
  Receipt Date: 20200730
  Transmission Date: 20201103
  Serious: Yes (Death)
  Sender: FDA-Public Use
  Company Number: IN-PFIZER INC-2020279620

PATIENT
  Age: 68 Year
  Sex: Male

DRUGS (1)
  1. CRIZALK [Suspect]
     Active Substance: CRIZOTINIB
     Indication: ALK GENE REARRANGEMENT POSITIVE
     Dosage: 250 MG, 2X/DAY
     Route: 048
     Dates: start: 20200707

REACTIONS (5)
  - Vomiting [Unknown]
  - Neoplasm progression [Fatal]
  - Ageusia [Unknown]
  - Somnolence [Unknown]
  - Asthenia [Unknown]
